FAERS Safety Report 5134810-2 (Version None)
Quarter: 2006Q4

REPORT INFORMATION
  Report Type: 
  Country: None (occurrence: None)
  Receive Date: 20061025
  Receipt Date: 20060622
  Transmission Date: 20070319
  Serious: Yes (Death, Hospitalization)
  Sender: FDA-Public Use
  Company Number: US-SANOFI-SYNTHELABO-F03200600142

PATIENT
  Age: 63 Year
  Sex: Male

DRUGS (3)
  1. GEMCITABINE [Suspect]
     Indication: PANCREATIC CARCINOMA
     Route: 042
     Dates: start: 20060614, end: 20060614
  2. CAPECITABINE [Suspect]
     Indication: PANCREATIC CARCINOMA
     Route: 048
     Dates: start: 20060426
  3. OXALIPLATIN [Suspect]
     Indication: PANCREATIC CARCINOMA
     Route: 042
     Dates: start: 20060614, end: 20060614

REACTIONS (10)
  - ANAEMIA [None]
  - BRADYCARDIA [None]
  - DEATH [None]
  - DUODENAL ULCER [None]
  - DYSURIA [None]
  - HAEMATEMESIS [None]
  - HYPOKALAEMIA [None]
  - HYPOTENSION [None]
  - LEUKOPENIA [None]
  - SYNCOPE [None]
